FAERS Safety Report 10235592 (Version 1)
Quarter: 2014Q1

REPORT INFORMATION
  Report Type: Spontaneous
  Country: US (occurrence: None)
  Receive Date: 20140306
  Receipt Date: 20140306
  Transmission Date: 20141002
  Serious: Yes (Other)
  Sender: FDA-Public Use
  Company Number: 163-21880-13020867

PATIENT
  Age: 67 Year
  Sex: Female

DRUGS (3)
  1. REVLIMID(LENALIDOMIDE)(25 MILLGRAM, CAPSULES) [Suspect]
     Indication: PLASMA CELL MYELOMA
     Dosage: 25 MG, 21 IN 28 D, PO
     Dates: start: 20130115
  2. DEXAMETHASONE(DEXAMETHASONE)(UKNOWN) [Suspect]
  3. VELCADE(BORTEZOMIB) (INJECTION) [Suspect]
     Indication: PLASMA CELL MYELOMA

REACTIONS (8)
  - Anxiety [None]
  - Depression [None]
  - Decreased appetite [None]
  - Diarrhoea [None]
  - Rash [None]
  - Vulvovaginal burning sensation [None]
  - Gingival pain [None]
  - Oedema peripheral [None]
